FAERS Safety Report 11641696 (Version 1)
Quarter: 2015Q4

REPORT INFORMATION
  Report Type: Spontaneous
  Country: US (occurrence: US)
  Receive Date: 20151019
  Receipt Date: 20151019
  Transmission Date: 20160304
  Serious: No
  Sender: FDA-Public Use
  Company Number: US-LPDUSPRD-20140581

PATIENT
  Sex: Female

DRUGS (1)
  1. HYDROXYZINE HCL [Suspect]
     Active Substance: HYDROXYZINE HYDROCHLORIDE
     Dosage: DOSE UNKNOWN
     Route: 051

REACTIONS (2)
  - Expired product administered [Unknown]
  - Injection site nodule [Unknown]
